FAERS Safety Report 14997198 (Version 1)
Quarter: 2018Q2

REPORT INFORMATION
  Report Type: Spontaneous
  Country: US (occurrence: US)
  Receive Date: 20180522
  Receipt Date: 20180522
  Transmission Date: 20180711
  Serious: Yes (Other)
  Sender: FDA-Public Use
  Company Number: None

PATIENT
  Age: 28 Year
  Sex: Female
  Weight: 87.3 kg

DRUGS (1)
  1. GABAPENTIN. [Suspect]
     Active Substance: GABAPENTIN
     Indication: POST HERPETIC NEURALGIA
     Dates: end: 20180416

REACTIONS (5)
  - Quality of life decreased [None]
  - Rhabdomyolysis [None]
  - Myalgia [None]
  - Chromaturia [None]
  - Asthenia [None]

NARRATIVE: CASE EVENT DATE: 20160101
